FAERS Safety Report 15484320 (Version 4)
Quarter: 2019Q1

REPORT INFORMATION
  Report Type: Spontaneous
  Country: ES (occurrence: ES)
  Receive Date: 20181010
  Receipt Date: 20190221
  Transmission Date: 20190417
  Serious: Yes (Disabling, Other)
  Sender: FDA-Public Use
  Company Number: ES-PFIZER INC-2018404766

PATIENT
  Age: 41 Year
  Sex: Female

DRUGS (11)
  1. SEVOFLURANE. [Suspect]
     Active Substance: SEVOFLURANE
     Indication: HYPOTENSIVE ANAESTHESIA PROCEDURE
     Dosage: UNK
  2. ROCURONIUM [Suspect]
     Active Substance: ROCURONIUM BROMIDE
     Indication: HYPOTENSIVE ANAESTHESIA PROCEDURE
     Dosage: 40 MG, UNK
  3. MIDAZOLAM [Concomitant]
     Active Substance: MIDAZOLAM HYDROCHLORIDE
     Indication: PREMEDICATION
     Dosage: 2 MG, UNK
     Route: 042
  4. OXYGEN. [Concomitant]
     Active Substance: OXYGEN
     Indication: OXYGEN THERAPY
     Dosage: OXYGEN 60% APPLIED DURING 5 MIN USING A FACIAL MASK
  5. OXYGEN. [Concomitant]
     Active Substance: OXYGEN
     Dosage: INSPIRED OXYGEN FRACTION OF 40% (OXYGEN/AIR) DURING MAINTENANCE OF ANAESTHESIA
  6. FENTANYL. [Suspect]
     Active Substance: FENTANYL
     Dosage: ADDITIONAL DOSES WERE ADMINISTERED
  7. MORPHINE [Suspect]
     Active Substance: MORPHINE
     Indication: HYPOTENSIVE ANAESTHESIA PROCEDURE
     Dosage: UNK
  8. PROPOFOL. [Suspect]
     Active Substance: PROPOFOL
     Indication: HYPOTENSIVE ANAESTHESIA PROCEDURE
     Dosage: 150 MG, UNK
  9. REMIFENTANIL [Suspect]
     Active Substance: REMIFENTANIL
     Indication: HYPOTENSIVE ANAESTHESIA PROCEDURE
     Dosage: UNK
  10. FENTANYL. [Suspect]
     Active Substance: FENTANYL
     Indication: HYPOTENSIVE ANAESTHESIA PROCEDURE
     Dosage: 100 MG, UNK
  11. OXYMETAZOLINE [Concomitant]
     Active Substance: OXYMETAZOLINE
     Indication: PREMEDICATION
     Dosage: UNK
     Route: 045

REACTIONS (2)
  - Blindness unilateral [Unknown]
  - Optic neuropathy [Unknown]
